FAERS Safety Report 4838630-5 (Version None)
Quarter: 2005Q4

REPORT INFORMATION
  Report Type: 
  Country: None (occurrence: None)
  Receive Date: 20051129
  Receipt Date: 20050801
  Transmission Date: 20060501
  Serious: No
  Sender: FDA-Public Use
  Company Number: US-GLAXOSMITHKLINE-A0568774A

PATIENT
  Age: 56 Year
  Sex: Female

DRUGS (1)
  1. COMMIT [Suspect]
     Dates: start: 20050728, end: 20050729

REACTIONS (7)
  - APHTHOUS STOMATITIS [None]
  - DYSPNOEA [None]
  - HYPERSENSITIVITY [None]
  - LYMPHADENOPATHY [None]
  - MUSCLE SPASMS [None]
  - SPEECH DISORDER [None]
  - SWOLLEN TONGUE [None]
